FAERS Safety Report 5136834-8 (Version None)
Quarter: 2006Q4

REPORT INFORMATION
  Report Type: 
  Country: None (occurrence: None)
  Receive Date: 20061023
  Receipt Date: 20061006
  Transmission Date: 20070319
  Serious: No
  Sender: FDA-Public Use
  Company Number: 36667

PATIENT
  Age: 38 Year

DRUGS (2)
  1. MAXIDEX [Suspect]
     Indication: OCULAR HYPERAEMIA
     Dosage: OPHT
     Route: 047
     Dates: start: 20060814, end: 20060814
  2. HYPROMELLOSE [Concomitant]

REACTIONS (5)
  - DIZZINESS [None]
  - DYSGEUSIA [None]
  - HEADACHE [None]
  - NAUSEA [None]
  - VISION BLURRED [None]
